FAERS Safety Report 12222492 (Version 16)
Quarter: 2020Q3

REPORT INFORMATION
  Report Type: Report from Study
  Country: ES (occurrence: ES)
  Receive Date: 20160330
  Receipt Date: 20180426
  Transmission Date: 20201105
  Serious: Yes (Hospitalization)
  Sender: FDA-Public Use
  Company Number: ES-JNJFOC-20160320897

PATIENT
  Age: 82 Year
  Sex: Male
  Weight: 70.8 kg

DRUGS (10)
  1. ABIRATERONE ACETATE. [Suspect]
     Active Substance: ABIRATERONE ACETATE
     Route: 048
  2. DEFLAZACORT [Concomitant]
     Active Substance: DEFLAZACORT
     Indication: RHINITIS
     Dates: start: 201603
  3. URBASON [Concomitant]
     Active Substance: METHYLPREDNISOLONE
     Indication: RASH
     Route: 048
     Dates: start: 20160317, end: 20160413
  4. JNJ?56021927 [Suspect]
     Active Substance: APALUTAMIDE
     Indication: PROSTATE CANCER METASTATIC
     Route: 048
     Dates: start: 20151231, end: 20160320
  5. PREDNISONE. [Suspect]
     Active Substance: PREDNISONE
     Indication: PROSTATE CANCER METASTATIC
     Route: 048
     Dates: start: 20151231, end: 20160320
  6. EBASTEL [Concomitant]
     Active Substance: EBASTINE
     Indication: SEASONAL ALLERGY
     Route: 048
     Dates: start: 20160304, end: 20160313
  7. ABIRATERONE ACETATE. [Suspect]
     Active Substance: ABIRATERONE ACETATE
     Indication: PROSTATE CANCER METASTATIC
     Route: 048
     Dates: start: 20151231, end: 20160320
  8. PRIMPERAN [Concomitant]
     Active Substance: METOCLOPRAMIDE HYDROCHLORIDE
     Indication: BACK PAIN
     Route: 042
     Dates: start: 20160321, end: 20160321
  9. DIAZEPAM. [Concomitant]
     Active Substance: DIAZEPAM
     Indication: ANXIETY
     Route: 048
  10. METOCLOPRAMIDA [Concomitant]
     Active Substance: METOCLOPRAMIDE HYDROCHLORIDE
     Indication: BACK PAIN
     Route: 042
     Dates: start: 20160318, end: 20160318

REACTIONS (2)
  - Pancreatitis [Recovered/Resolved]
  - Rash [Recovering/Resolving]

NARRATIVE: CASE EVENT DATE: 20160321
